FAERS Safety Report 15578611 (Version 1)
Quarter: 2018Q4

REPORT INFORMATION
  Report Type: Report from Study
  Country: AU (occurrence: AU)
  Receive Date: 20181102
  Receipt Date: 20181102
  Transmission Date: 20190205
  Serious: Yes (Other)
  Sender: FDA-Public Use
  Company Number: AU-AMGEN-AUSSL2018152659

PATIENT
  Age: 71 Year
  Sex: Male

DRUGS (2)
  1. KYPROLIS [Suspect]
     Active Substance: CARFILZOMIB
     Indication: PLASMA CELL MYELOMA
     Dosage: 56 MG/M2, UNK
     Route: 065
     Dates: start: 2017
  2. KYPROLIS [Suspect]
     Active Substance: CARFILZOMIB
     Dosage: UNK, DOSE REDUCED
     Route: 065

REACTIONS (1)
  - Cardiac dysfunction [Recovered/Resolved with Sequelae]
